FAERS Safety Report 8004186-1 (Version None)
Quarter: 2011Q4

REPORT INFORMATION
  Report Type: 
  Country: None (occurrence: None)
  Receive Date: 20111223
  Receipt Date: 20111216
  Transmission Date: 20120403
  Serious: Yes (Hospitalization)
  Sender: FDA-Public Use
  Company Number: US-BIOGENIDEC-2011BI025071

PATIENT
  Age: 65 Year
  Sex: Female

DRUGS (3)
  1. AVONEX [Suspect]
     Indication: MULTIPLE SCLEROSIS
     Route: 030
     Dates: start: 20110329, end: 20111028
  2. AVONEX [Suspect]
     Route: 030
     Dates: start: 20110329, end: 20111028
  3. AVONEX [Suspect]
     Route: 030
     Dates: start: 20110329, end: 20111028

REACTIONS (1)
  - ENDOMETRIAL CANCER [None]
